FAERS Safety Report 4953329-2 (Version None)
Quarter: 2006Q1

REPORT INFORMATION
  Report Type: 
  Country: None (occurrence: None)
  Receive Date: 20060324
  Receipt Date: 20060315
  Transmission Date: 20060701
  Serious: Yes (Hospitalization, Other)
  Sender: FDA-Public Use
  Company Number: US-JNJFOC-20060304266

PATIENT
  Sex: Female
  Weight: 38.1 kg

DRUGS (8)
  1. TOPAMAX [Suspect]
     Dosage: PATIENT ^TAPERING HERSELF OFF^ DRUG
     Route: 048
  2. TOPAMAX [Suspect]
     Route: 048
  3. TOPAMAX [Suspect]
     Route: 048
  4. TOPAMAX [Suspect]
     Indication: MIGRAINE PROPHYLAXIS
     Route: 048
  5. NEURONTIN [Concomitant]
     Indication: MIGRAINE
     Route: 048
  6. VALIUM [Concomitant]
     Indication: MUSCLE SPASMS
     Route: 048
  7. FLEXERIL [Concomitant]
     Indication: INTERVERTEBRAL DISC DEGENERATION
  8. KLONOPIN [Concomitant]
     Indication: DEPRESSION
     Route: 048

REACTIONS (16)
  - AMNESIA [None]
  - ANAL FISSURE [None]
  - BREAST PAIN [None]
  - CONSTIPATION [None]
  - COUGH [None]
  - DEPRESSION [None]
  - DISTURBANCE IN ATTENTION [None]
  - DRY EYE [None]
  - DYSPHONIA [None]
  - EYE IRRITATION [None]
  - EYE PAIN [None]
  - INTERVERTEBRAL DISC DEGENERATION [None]
  - SUICIDE ATTEMPT [None]
  - TREMOR [None]
  - VISION BLURRED [None]
  - WEIGHT DECREASED [None]
